FAERS Safety Report 9223602 (Version 2)
Quarter: 2013Q3

REPORT INFORMATION
  Report Type: Spontaneous
  Country: US (occurrence: US)
  Receive Date: 20130410
  Receipt Date: 20130805
  Transmission Date: 20140515
  Serious: No
  Sender: FDA-Public Use
  Company Number: US-ASTRAZENECA-2013SE20327

PATIENT
  Age: 71 Year
  Sex: Female

DRUGS (10)
  1. CRESTOR [Suspect]
     Route: 048
  2. BRILINTA [Interacting]
     Indication: STENT PLACEMENT
     Route: 048
     Dates: start: 2012
  3. BRILINTA [Interacting]
     Indication: STENT PLACEMENT
     Route: 048
  4. PLAVIX [Interacting]
     Route: 065
  5. AMLODAPINE [Concomitant]
  6. BENAZEPRIL [Concomitant]
  7. DEXILANT [Concomitant]
  8. LEVOTHYROXINE [Concomitant]
  9. LORAZAPAM [Concomitant]
  10. TYLENOL [Concomitant]
     Indication: PAIN
     Dosage: AS NEEDED

REACTIONS (2)
  - Drug interaction [Unknown]
  - Contusion [Not Recovered/Not Resolved]
